FAERS Safety Report 20529289 (Version 1)
Quarter: 2022Q1

REPORT INFORMATION
  Report Type: Spontaneous
  Country: FR (occurrence: FR)
  Receive Date: 20220228
  Receipt Date: 20220228
  Transmission Date: 20220423
  Serious: Yes (Death, Other)
  Sender: FDA-Public Use
  Company Number: FR-TAKEDA-2022TJP024135

PATIENT
  Age: 50 Year
  Sex: Female

DRUGS (3)
  1. ADCETRIS [Suspect]
     Active Substance: BRENTUXIMAB VEDOTIN
     Indication: Anaplastic large-cell lymphoma
     Dosage: UNK
     Route: 065
  2. METHOTREXATE [Suspect]
     Active Substance: METHOTREXATE
     Indication: Dermatitis atopic
     Dosage: 15 MILLIGRAM, 1/WEEK
     Route: 065
  3. BENDAMUSTINE [Suspect]
     Active Substance: BENDAMUSTINE
     Indication: Anaplastic large-cell lymphoma
     Dosage: UNK
     Route: 065

REACTIONS (4)
  - Cytomegalovirus infection [Fatal]
  - Fibrosis [Fatal]
  - Bone marrow failure [Unknown]
  - Hepatotoxicity [Unknown]
